FAERS Safety Report 4719275-4 (Version None)
Quarter: 2005Q3

REPORT INFORMATION
  Report Type: 
  Country: None (occurrence: None)
  Receive Date: 20050721
  Receipt Date: 20050415
  Transmission Date: 20060218
  Serious: No
  Sender: FDA-Public Use
  Company Number: US-BRISTOL-MYERS SQUIBB COMPANY-12935367

PATIENT
  Age: 11 Year
  Sex: Male

DRUGS (2)
  1. CEFEPIME HCL [Suspect]
     Indication: OSTEOMYELITIS
     Route: 042
     Dates: start: 20050411
  2. TYLENOL [Concomitant]

REACTIONS (2)
  - DYSPHASIA [None]
  - TONGUE DISORDER [None]
